FAERS Safety Report 6338542-4 (Version None)
Quarter: 2009Q3

REPORT INFORMATION
  Report Type: 
  Country: None (occurrence: None)
  Receive Date: 20090901
  Receipt Date: 20090826
  Transmission Date: 20100115
  Serious: Yes (Other)
  Sender: FDA-Public Use
  Company Number: 2009AL005637

PATIENT
  Age: 47 Year
  Sex: Male

DRUGS (8)
  1. TRAMADOL HYDROCHLORIDE [Suspect]
     Indication: PAIN
     Dosage: 50 MG;PO
     Route: 048
     Dates: start: 20090804, end: 20090804
  2. BUDESONIDE [Concomitant]
  3. FORMOTEROL FUMARATE [Concomitant]
  4. SALBUTAMOL [Concomitant]
  5. AMLODIPINE [Concomitant]
  6. CIPROFLAXACIN [Concomitant]
  7. AMOXICILLIN AND CLAVULANATE POTASSIUM [Concomitant]
  8. BENZYDAMINE [Concomitant]

REACTIONS (4)
  - DIZZINESS [None]
  - HEAD DISCOMFORT [None]
  - MALAISE [None]
  - NAUSEA [None]
